FAERS Safety Report 7688034-5 (Version None)
Quarter: 2011Q3

REPORT INFORMATION
  Report Type: 
  Country: None (occurrence: None)
  Receive Date: 20110817
  Receipt Date: 20110815
  Transmission Date: 20111222
  Serious: Yes (Other)
  Sender: FDA-Public Use
  Company Number: US-PFIZER INC-HQWYE237409MAY06

PATIENT
  Sex: Female
  Weight: 54 kg

DRUGS (19)
  1. VICODIN [Concomitant]
     Indication: PAIN
     Dosage: UNK
     Dates: start: 20000101, end: 20090101
  2. CYCLOBENZAPRINE [Concomitant]
     Indication: MUSCLE RELAXANT THERAPY
     Dosage: UNK
     Dates: start: 19991001
  3. SPIRONOLACTONE [Concomitant]
     Indication: ASCITES
     Dosage: UNK
     Dates: start: 19991001, end: 20060401
  4. TRAMADOL [Concomitant]
     Indication: PAIN
     Dosage: UNK
     Dates: start: 20020701, end: 20101201
  5. PREMPRO [Suspect]
     Indication: HORMONE REPLACEMENT THERAPY
     Dosage: 0.625/2.5 MG
     Route: 048
     Dates: start: 19990101, end: 20030101
  6. OGEN [Suspect]
     Indication: HORMONE REPLACEMENT THERAPY
     Dosage: 0.625 MG, UNK
     Route: 048
     Dates: start: 19960101, end: 19990101
  7. ULTRAM [Concomitant]
     Indication: PAIN
     Dosage: UNK
     Dates: start: 19981201
  8. VISTARIL [Concomitant]
     Indication: NAUSEA
     Dosage: UNK
     Dates: start: 20010801
  9. PROVERA [Suspect]
     Indication: HORMONE REPLACEMENT THERAPY
     Dosage: 2.5 MG, UNK
     Route: 048
     Dates: start: 19960101, end: 19990101
  10. CYCRIN [Suspect]
     Indication: HORMONE REPLACEMENT THERAPY
     Dosage: 2.5 MG, UNK
     Dates: start: 19980101, end: 19990101
  11. PAXIL [Concomitant]
     Indication: DEPRESSION
     Dosage: UNK
     Dates: start: 19981101
  12. ACETAMINOPHEN AND HYDROCODONE BITARTRATE [Concomitant]
     Indication: PAIN
     Dosage: UNK
     Dates: start: 20000901
  13. ACETYLSALICYLIC ACID [Concomitant]
     Indication: MIGRAINE
     Dosage: UNK
  14. INFED [Concomitant]
     Indication: MINERAL SUPPLEMENTATION
     Dosage: UNK
     Dates: start: 19970801, end: 20061101
  15. MEDROXYPROGESTERONE ACETATE [Suspect]
     Indication: HORMONE REPLACEMENT THERAPY
     Dosage: UNK
     Route: 048
     Dates: start: 19960101, end: 20030601
  16. REGLAN [Concomitant]
     Indication: GASTRIC ULCER
     Dosage: UNK
     Dates: end: 20090801
  17. ESTROPIPATE [Suspect]
     Indication: HORMONE REPLACEMENT THERAPY
     Dosage: 0.625 MG, UNK
     Dates: start: 19980101, end: 19990101
  18. HYOSCYAMINE [Concomitant]
     Indication: MUSCLE SPASMS
     Dosage: UNK
     Dates: start: 20000101
  19. MEDROXYPROGESTERONE ACETATE [Suspect]
     Dosage: UNK
     Dates: start: 19960101, end: 20030601

REACTIONS (1)
  - BREAST CANCER FEMALE [None]
